FAERS Safety Report 4581141-5 (Version None)
Quarter: 2005Q1

REPORT INFORMATION
  Report Type: 
  Country: None (occurrence: None)
  Receive Date: 20050214
  Receipt Date: 20040810
  Transmission Date: 20050727
  Serious: Yes (Hospitalization)
  Sender: FDA-Public Use
  Company Number: S04-USA-04591-01

PATIENT
  Age: 52 Year
  Sex: Female

DRUGS (3)
  1. LAMICTAL [Suspect]
     Indication: BIPOLAR DISORDER
     Dosage: 150MG PER DAY
     Route: 048
     Dates: start: 20040101, end: 20040720
  2. LEXAPRO [Suspect]
     Indication: DEPRESSION
     Dosage: 10MG PER DAY
     Route: 048
     Dates: start: 20040501, end: 20040720
  3. NO CONCURRENT MEDICATIONS [Concomitant]

REACTIONS (2)
  - CHOREOATHETOSIS [None]
  - HYPOMANIA [None]
